FAERS Safety Report 9478188 (Version 2)
Quarter: 2013Q3

REPORT INFORMATION
  Report Type: Spontaneous
  Country: US (occurrence: US)
  Receive Date: 20130827
  Receipt Date: 20130924
  Transmission Date: 20140515
  Serious: Yes (Other)
  Sender: FDA-Public Use
  Company Number: US-PFIZER INC-2013241939

PATIENT
  Age: 73 Year
  Sex: Female

DRUGS (1)
  1. PREMARIN [Suspect]
     Indication: VULVOVAGINAL DRYNESS
     Dosage: 2 G, SOMETIMES TWO TIMES IN A WEEK AND SOMETIMES WEEKLY
     Route: 067
     Dates: start: 2007

REACTIONS (3)
  - Kidney infection [Unknown]
  - Cystitis [Unknown]
  - Back disorder [Unknown]
